FAERS Safety Report 6405545-0 (Version None)
Quarter: 2009Q4

REPORT INFORMATION
  Report Type: 
  Country: None (occurrence: None)
  Receive Date: 20091019
  Receipt Date: 20091007
  Transmission Date: 20100525
  Serious: Yes (Death)
  Sender: FDA-Public Use
  Company Number: HU-PFIZER INC-2009281044

PATIENT

DRUGS (1)
  1. METHYLPREDNISOLONE AND METHYLPREDNISOLONE ACETATE AND METHYLPREDNISOLO [Suspect]
     Indication: ENCEPHALOMYELITIS
     Dosage: 20 MG, 1X/DAY

REACTIONS (2)
  - BRAIN OEDEMA [None]
  - DISEASE PROGRESSION [None]
